FAERS Safety Report 22305655 (Version 1)
Quarter: 2023Q2

REPORT INFORMATION
  Report Type: Report from Study
  Country: US (occurrence: US)
  Receive Date: 20230510
  Receipt Date: 20230510
  Transmission Date: 20230722
  Serious: Yes (Hospitalization)
  Sender: FDA-Public Use
  Company Number: US-ABBVIE-4758959

PATIENT
  Sex: Male

DRUGS (2)
  1. IMBRUVICA [Suspect]
     Active Substance: IBRUTINIB
     Indication: Rectal cancer
     Route: 048
  2. CAPECITABINE EG [Concomitant]
     Indication: Rectal cancer

REACTIONS (5)
  - Pneumonia [Unknown]
  - Seizure [Unknown]
  - Renal failure [Unknown]
  - Atrial fibrillation [Unknown]
  - Brain neoplasm [Unknown]
